FAERS Safety Report 10236631 (Version 1)
Quarter: 2014Q1

REPORT INFORMATION
  Report Type: Spontaneous
  Country: US (occurrence: None)
  Receive Date: 20140306
  Receipt Date: 20140306
  Transmission Date: 20141002
  Serious: Yes (Other)
  Sender: FDA-Public Use
  Company Number: 163-21880-13081979

PATIENT
  Age: 72 Year
  Sex: Male

DRUGS (14)
  1. REVLIMID [Suspect]
     Indication: B-CELL LYMPHOMA
     Dosage: 21 IN 28 D
     Route: 048
     Dates: start: 20130514, end: 2013
  2. DECADRON (DEXAMETHASONE) [Concomitant]
  3. HYDROXYZINE HCL (HYDROXYZINE HYDROCHLORIDE) [Concomitant]
  4. ONDANSETRON [Concomitant]
  5. VALACYCLOVIR HCL (VALACICLOVIR HYDROCHLORIDE) [Concomitant]
  6. VIAGRA (SILDENAFIL CITRATE) [Concomitant]
  7. AMLODIPINE BESYLATE (AMLODIPINE BESILATE) [Concomitant]
  8. FUROSEMIDE [Concomitant]
  9. LISINOPRIL-HYDROCHLOROTHIAZIDE (ZESTORETIC) [Concomitant]
  10. LORAZEPAM [Concomitant]
  11. POTASSIUM CHLORIDE [Concomitant]
  12. ALLOPURINOL [Concomitant]
  13. MULTIVITAMIN [Concomitant]
  14. OMEPRAZOLE [Concomitant]

REACTIONS (6)
  - Pleural effusion [None]
  - Periorbital oedema [None]
  - Urticaria [None]
  - Swelling [None]
  - B-cell lymphoma [None]
  - Disease progression [None]
